FAERS Safety Report 7264376-2 (Version None)
Quarter: 2011Q1

REPORT INFORMATION
  Report Type: 
  Country: None (occurrence: None)
  Receive Date: 20110131
  Receipt Date: 20110121
  Transmission Date: 20110831
  Serious: No
  Sender: FDA-Public Use
  Company Number: US-BIOGENIDEC-2011BI002445

PATIENT
  Age: 46 Year
  Sex: Female

DRUGS (1)
  1. AVONEX [Suspect]
     Indication: MULTIPLE SCLEROSIS
     Route: 030
     Dates: start: 19960522

REACTIONS (9)
  - INJECTION SITE ERYTHEMA [None]
  - INJECTION SITE WARMTH [None]
  - HEADACHE [None]
  - LIVER FUNCTION TEST [None]
  - INJECTION SITE MASS [None]
  - INFLUENZA LIKE ILLNESS [None]
  - INSOMNIA [None]
  - INJECTION SITE PRURITUS [None]
  - EYE PAIN [None]
